FAERS Safety Report 21956054 (Version 2)
Quarter: 2023Q1

REPORT INFORMATION
  Report Type: Report from Study
  Country: IT (occurrence: IT)
  Receive Date: 20230206
  Receipt Date: 20230331
  Transmission Date: 20230418
  Serious: Yes (Hospitalization)
  Sender: FDA-Public Use
  Company Number: IT-TAKEDA-2023TUS012652

PATIENT
  Age: 82 Year
  Sex: Male

DRUGS (8)
  1. TEDUGLUTIDE [Suspect]
     Active Substance: TEDUGLUTIDE
     Indication: Short-bowel syndrome
     Dosage: 4.65 MILLIGRAM, QD
     Route: 042
     Dates: start: 20200627, end: 20220426
  2. TEDUGLUTIDE [Suspect]
     Active Substance: TEDUGLUTIDE
     Indication: Short-bowel syndrome
     Dosage: 4.65 MILLIGRAM, QD
     Route: 042
     Dates: start: 20200627, end: 20220426
  3. TEDUGLUTIDE [Suspect]
     Active Substance: TEDUGLUTIDE
     Indication: Short-bowel syndrome
     Dosage: 4.65 MILLIGRAM, QD
     Route: 042
     Dates: start: 20200627, end: 20220426
  4. TEDUGLUTIDE [Suspect]
     Active Substance: TEDUGLUTIDE
     Indication: Short-bowel syndrome
     Dosage: 4.65 MILLIGRAM, QD
     Route: 042
     Dates: start: 20200627, end: 20220426
  5. FERROUS SULFATE [Concomitant]
     Active Substance: FERROUS SULFATE
     Indication: Iron deficiency anaemia
     Dosage: UNK UNK, QD
     Route: 048
     Dates: start: 20210802
  6. PANTOPRAZOLE [Concomitant]
     Active Substance: PANTOPRAZOLE
     Indication: Gastrointestinal disorder prophylaxis
     Dosage: 40 MILLIGRAM
     Route: 048
  7. CHOLECALCIFEROL [Concomitant]
     Active Substance: CHOLECALCIFEROL
     Indication: Nutritional supplementation
     Dosage: 300000.0 INTERNATIONAL UNIT, QD
     Route: 048
     Dates: start: 2015
  8. GLUCOSALINE [Concomitant]
     Indication: Nutritional supplementation
     Dosage: 1 INTERNATIONAL UNIT
     Route: 048
     Dates: start: 2015

REACTIONS (1)
  - Dehydration [Recovered/Resolved]

NARRATIVE: CASE EVENT DATE: 20220721
